FAERS Safety Report 7771657-2 (Version None)
Quarter: 2011Q3

REPORT INFORMATION
  Report Type: 
  Country: None (occurrence: None)
  Receive Date: 20110922
  Receipt Date: 20110121
  Transmission Date: 20111222
  Serious: No
  Sender: FDA-Public Use
  Company Number: US-ASTRAZENECA-2011SE03851

PATIENT
  Age: 40 Year
  Sex: Female
  Weight: 63.5 kg

DRUGS (3)
  1. SEROQUEL [Suspect]
     Indication: DEPRESSION
     Route: 048
     Dates: start: 20050101, end: 20101001
  2. ZOLOFT [Concomitant]
  3. XANAX [Concomitant]

REACTIONS (3)
  - DRUG DOSE OMISSION [None]
  - DEPRESSION [None]
  - INSOMNIA [None]
